FAERS Safety Report 5328690-X (Version None)
Quarter: 2007Q2

REPORT INFORMATION
  Report Type: 
  Country: None (occurrence: None)
  Receive Date: 20070518
  Receipt Date: 20070516
  Transmission Date: 20071010
  Serious: Yes (Other)
  Sender: FDA-Public Use
  Company Number: B0470186A

PATIENT
  Age: 60 Year
  Sex: Female
  Weight: 70 kg

DRUGS (2)
  1. LAPATINIB [Suspect]
     Indication: BREAST CANCER
     Dates: start: 20070419, end: 20070504
  2. PERSANTIN [Concomitant]
     Indication: MYELODYSPLASTIC SYNDROME
     Dosage: 75MG TWICE PER DAY
     Route: 048

REACTIONS (2)
  - HAEMATOCRIT INCREASED [None]
  - PLATELET COUNT INCREASED [None]
